FAERS Safety Report 13761534 (Version 4)
Quarter: 2017Q3

REPORT INFORMATION
  Report Type: Spontaneous
  Country: US (occurrence: US)
  Receive Date: 20170717
  Receipt Date: 20170808
  Transmission Date: 20171127
  Serious: Yes (Other)
  Sender: FDA-Public Use
  Company Number: US-009507513-1707USA003677

PATIENT
  Age: 18 Year
  Sex: Female
  Weight: 80.27 kg

DRUGS (1)
  1. NEXPLANON [Suspect]
     Active Substance: ETONOGESTREL
     Dosage: 1/EVERY 3 YEARS, IN LEFT ARM
     Route: 059
     Dates: start: 20150129, end: 20170706

REACTIONS (3)
  - Postoperative wound infection [Not Recovered/Not Resolved]
  - Device breakage [Recovering/Resolving]
  - Difficulty removing drug implant [Recovering/Resolving]

NARRATIVE: CASE EVENT DATE: 201707
